FAERS Safety Report 11052834 (Version 1)
Quarter: 2015Q2

REPORT INFORMATION
  Report Type: Spontaneous
  Country: TR (occurrence: None)
  Receive Date: 20150417
  Receipt Date: 20150417
  Transmission Date: 20150821
  Serious: Yes (Hospitalization)
  Sender: FDA-Public Use
  Company Number: 8021109

PATIENT
  Age: 48 Year
  Sex: Female

DRUGS (1)
  1. LEVOTHYROXINE (LEVOTHYROXINE) (LEVOTHYROXINE SODIUM) [Suspect]
     Active Substance: LEVOTHYROXINE
     Indication: OBESITY

REACTIONS (7)
  - Confusional state [None]
  - Purging [None]
  - Off label use [None]
  - Disorientation [None]
  - Irritability [None]
  - Hyperthyroidism [None]
  - Mutism [None]
